FAERS Safety Report 8312197-1 (Version None)
Quarter: 2012Q2

REPORT INFORMATION
  Report Type: 
  Country: None (occurrence: None)
  Receive Date: 20120425
  Receipt Date: 20120418
  Transmission Date: 20120825
  Serious: Yes (Other)
  Sender: FDA-Public Use
  Company Number: US-BAYER-2012-038106

PATIENT
  Age: 82 Year
  Sex: Male
  Weight: 68 kg

DRUGS (2)
  1. ASPIRIN [Suspect]
     Dosage: 81 MG, QD WITH FOOD
     Route: 048
  2. PLAVIX [Suspect]

REACTIONS (1)
  - GASTRIC HAEMORRHAGE [None]
